FAERS Safety Report 7640419-9 (Version None)
Quarter: 2011Q3

REPORT INFORMATION
  Report Type: 
  Country: None (occurrence: None)
  Receive Date: 20110728
  Receipt Date: 20110721
  Transmission Date: 20111222
  Serious: Yes (Hospitalization)
  Sender: FDA-Public Use
  Company Number: US-BIOGENIDEC-2011BI025913

PATIENT
  Age: 40 Year
  Sex: Female

DRUGS (3)
  1. MEDICATION NOS [Concomitant]
  2. PSYCH MEDICATIONS NOS [Concomitant]
     Indication: MENTAL DISORDER
  3. AVONEX [Suspect]
     Indication: MULTIPLE SCLEROSIS
     Route: 030
     Dates: start: 20110627

REACTIONS (1)
  - SOMNOLENCE [None]
